FAERS Safety Report 9144061 (Version 4)
Quarter: 2014Q1

REPORT INFORMATION
  Report Type: Spontaneous
  Country: JP (occurrence: JP)
  Receive Date: 20130306
  Receipt Date: 20140324
  Transmission Date: 20141002
  Serious: Yes (Hospitalization)
  Sender: FDA-Public Use
  Company Number: JP-PFIZER INC-2013071256

PATIENT
  Age: 62 Year
  Sex: Male

DRUGS (2)
  1. VIAGRA [Suspect]
     Indication: ERECTILE DYSFUNCTION
     Dosage: 50 MG
     Route: 048
  2. AMYL NITRITE [Suspect]
     Dosage: UNK

REACTIONS (2)
  - Methaemoglobinaemia [Recovered/Resolved]
  - Arrhythmia [Recovered/Resolved]
